FAERS Safety Report 26162810 (Version 2)
Quarter: 2025Q4

REPORT INFORMATION
  Report Type: Spontaneous
  Country: GB (occurrence: GB)
  Receive Date: 20251216
  Receipt Date: 20251229
  Transmission Date: 20260117
  Serious: No
  Sender: MYLAN
  Company Number: None

PATIENT
  Age: 37 Year
  Sex: Male
  Weight: 74 kg

DRUGS (1)
  1. DOXYCYCLINE [Suspect]
     Active Substance: DOXYCYCLINE
     Indication: Bacteriuria
     Dosage: 100 MILLIGRAM, QD (ONCE A DAY)
     Dates: start: 20251114, end: 20251203

REACTIONS (1)
  - Abdominal pain upper [Recovered/Resolved with Sequelae]

NARRATIVE: CASE EVENT DATE: 20251203
